FAERS Safety Report 12197348 (Version 1)
Quarter: 2016Q1

REPORT INFORMATION
  Report Type: Spontaneous
  Country: US (occurrence: US)
  Receive Date: 20160322
  Receipt Date: 20160322
  Transmission Date: 20160526
  Serious: No
  Sender: FDA-Public Use
  Company Number: US-009507513-1602USA011801

PATIENT
  Age: 50 Year
  Sex: Male
  Weight: 77.11 kg

DRUGS (5)
  1. METHOTREXATE [Concomitant]
     Active Substance: METHOTREXATE
     Indication: RHEUMATOID ARTHRITIS
     Dosage: 8 CAPSULES 2.5MG EACH ONCE A WEEK
     Route: 048
  2. FOSAMAX [Suspect]
     Active Substance: ALENDRONATE SODIUM
     Indication: BONE DENSITY DECREASED
     Dosage: UNK
     Route: 048
     Dates: end: 2004
  3. FOLIC ACID. [Concomitant]
     Active Substance: FOLIC ACID
     Indication: RHEUMATOID ARTHRITIS
     Dosage: EVERY DAY EXCEPT FOR THE DAY HE TAKES METHOTREXATE
     Dates: start: 1998
  4. PLAQUINOL [Concomitant]
     Active Substance: HYDROXYCHLOROQUINE SULFATE
     Indication: RHEUMATOID ARTHRITIS
     Dosage: 200MG BY TWO TABLETS ONCE A DAY
     Route: 048
     Dates: start: 1998
  5. VITAMIN D [Concomitant]
     Active Substance: CHOLECALCIFEROL
     Indication: RHEUMATOID ARTHRITIS
     Dosage: 2000 UNITS CAPSULE ONCE A DAY
     Route: 048
     Dates: start: 1998

REACTIONS (3)
  - Gastric disorder [Unknown]
  - Gastrooesophageal reflux disease [Unknown]
  - Abdominal discomfort [Recovering/Resolving]

NARRATIVE: CASE EVENT DATE: 20160205
